FAERS Safety Report 6364135-9 (Version None)
Quarter: 2009Q3

REPORT INFORMATION
  Report Type: 
  Country: None (occurrence: None)
  Receive Date: 20090919
  Receipt Date: 20090818
  Transmission Date: 20100115
  Serious: No
  Sender: FDA-Public Use
  Company Number: US-ABBOTT-09P-163-0563370-00

PATIENT
  Sex: Male
  Weight: 99.88 kg

DRUGS (3)
  1. HUMIRA [Suspect]
     Indication: RHEUMATOID ARTHRITIS
     Route: 058
     Dates: start: 20090317
  2. HUMIRA [Suspect]
     Route: 058
     Dates: start: 20090707
  3. OXAPROZIN [Concomitant]
     Indication: INFLAMMATION

REACTIONS (8)
  - ANXIETY [None]
  - BLOOD TEST ABNORMAL [None]
  - COUGH [None]
  - FATIGUE [None]
  - HYPERHIDROSIS [None]
  - INSOMNIA [None]
  - NASOPHARYNGITIS [None]
  - SPUTUM DISCOLOURED [None]
